FAERS Safety Report 19526522 (Version 1)
Quarter: 2021Q3

REPORT INFORMATION
  Report Type: Spontaneous
  Country: FR (occurrence: FR)
  Receive Date: 20210713
  Receipt Date: 20210713
  Transmission Date: 20211014
  Serious: Yes (Other)
  Sender: FDA-Public Use
  Company Number: FR-AUROBINDO-AUR-APL-2021-022047

PATIENT
  Age: 58 Year
  Sex: Female

DRUGS (3)
  1. TRASTUZUMAB. [Suspect]
     Active Substance: TRASTUZUMAB
     Indication: RENAL CANCER
     Dosage: 600 MILLIGRAM (3 WEEK)
     Route: 058
  2. TUCATINIB [Suspect]
     Active Substance: TUCATINIB
     Indication: RENAL CANCER
     Dosage: 600 MILLIGRAM, ONCE A DAY
     Route: 065
     Dates: start: 20210126, end: 20210203
  3. CAPECITABINE FILM COATED TABLET [Suspect]
     Active Substance: CAPECITABINE
     Indication: RENAL CANCER
     Dosage: 2000 MILLIGRAM/SQ. METER, ONCE A DAY (1000 MG/M2, BID)
     Route: 065

REACTIONS (2)
  - Diarrhoea [Unknown]
  - Mucosal inflammation [Unknown]

NARRATIVE: CASE EVENT DATE: 20210203
